FAERS Safety Report 12564082 (Version 1)
Quarter: 2016Q3

REPORT INFORMATION
  Report Type: Spontaneous
  Country: US (occurrence: None)
  Receive Date: 20160715
  Receipt Date: 20160715
  Transmission Date: 20161109
  Serious: Yes (Disabling, Other)
  Sender: FDA-Public Use
  Company Number: None

PATIENT
  Age: 41 Year
  Sex: Female
  Weight: 86.18 kg

DRUGS (6)
  1. MEDROXYPROGESTERONE [Suspect]
     Active Substance: MEDROXYPROGESTERONE
     Indication: MENSTRUAL DISORDER
     Dosage: 90 DAYS INJECTION
     Dates: start: 20160126, end: 20160426
  2. ZYRTEC [Concomitant]
     Active Substance: CETIRIZINE HYDROCHLORIDE
  3. VITAMIN C [Concomitant]
     Active Substance: ASCORBIC ACID
  4. WELLBUTRIN [Concomitant]
     Active Substance: BUPROPION HYDROCHLORIDE
  5. IRON [Concomitant]
     Active Substance: IRON
  6. FLONASE [Concomitant]
     Active Substance: FLUTICASONE PROPIONATE

REACTIONS (6)
  - Vision blurred [None]
  - Dizziness [None]
  - Muscle spasms [None]
  - Menorrhagia [None]
  - Paraesthesia [None]
  - Nausea [None]

NARRATIVE: CASE EVENT DATE: 20160713
